FAERS Safety Report 22657981 (Version 1)
Quarter: 2023Q2

REPORT INFORMATION
  Report Type: Spontaneous
  Country: BR (occurrence: BR)
  Receive Date: 20230630
  Receipt Date: 20230630
  Transmission Date: 20230721
  Serious: Yes (Other)
  Sender: FDA-Public Use
  Company Number: BR-ROCHE-3378230

PATIENT
  Sex: Female
  Weight: 76 kg

DRUGS (13)
  1. RIVOTRIL [Suspect]
     Active Substance: CLONAZEPAM
     Indication: Antidepressant therapy
     Dosage: HALF TABLET
     Route: 048
  2. OCREVUS [Concomitant]
     Active Substance: OCRELIZUMAB
     Indication: Multiple sclerosis
     Dosage: 300MG/ML EVERY 6 MONTHS
     Route: 042
     Dates: start: 20211220
  3. ALLOPURINOL [Concomitant]
     Active Substance: ALLOPURINOL
     Indication: Blood uric acid
  4. SIMVASTATIN [Concomitant]
     Active Substance: SIMVASTATIN
  5. PONDERAX [Concomitant]
     Active Substance: FENFLURAMINE HYDROCHLORIDE
  6. HYDROCHLOROTHIAZIDE [Concomitant]
     Active Substance: HYDROCHLOROTHIAZIDE
  7. LOSARTAN [Concomitant]
     Active Substance: LOSARTAN
  8. AMLODIPINE [Concomitant]
     Active Substance: AMLODIPINE BESYLATE
  9. QUETIAPINE [Concomitant]
     Active Substance: QUETIAPINE
  10. VALPROATE SODIUM [Concomitant]
     Active Substance: VALPROATE SODIUM
  11. GLIFAGE [Concomitant]
     Active Substance: METFORMIN HYDROCHLORIDE
  12. NESINA [Concomitant]
     Active Substance: ALOGLIPTIN BENZOATE
  13. ASPIRIN\DIHYDROXYALUMINUM AMINOACETATE ANHYDROUS\MAGNESIUM CARBONATE [Concomitant]
     Active Substance: ASPIRIN\DIHYDROXYALUMINUM AMINOACETATE ANHYDROUS\MAGNESIUM CARBONATE

REACTIONS (16)
  - Suicidal ideation [Not Recovered/Not Resolved]
  - Diabetes mellitus [Not Recovered/Not Resolved]
  - Multiple sclerosis [Not Recovered/Not Resolved]
  - Epilepsy [Not Recovered/Not Resolved]
  - Schizophrenia [Not Recovered/Not Resolved]
  - Hepatic steatosis [Not Recovered/Not Resolved]
  - Blood cholesterol [Not Recovered/Not Resolved]
  - Anxiety [Not Recovered/Not Resolved]
  - Gout [Not Recovered/Not Resolved]
  - Coagulopathy [Not Recovered/Not Resolved]
  - Mental disorder [Not Recovered/Not Resolved]
  - Irritability [Not Recovered/Not Resolved]
  - Nervousness [Not Recovered/Not Resolved]
  - Feeling abnormal [Not Recovered/Not Resolved]
  - Wrong technique in product usage process [Unknown]
  - Off label use [Unknown]
